FAERS Safety Report 10031037 (Version 1)
Quarter: 2014Q1

REPORT INFORMATION
  Report Type: Report from Study
  Country: ES (occurrence: ES)
  Receive Date: 20140324
  Receipt Date: 20140324
  Transmission Date: 20141002
  Serious: Yes (Other)
  Sender: FDA-Public Use
  Company Number: ES-ROCHE-1366689

PATIENT
  Age: 17 Year
  Sex: Female

DRUGS (1)
  1. BEVACIZUMAB [Suspect]
     Indication: ASTROCYTOMA
     Dosage: 25 MG/ML CONCENTRATE FOR SOLUTION FOR INFUSION, 1 VIAL OF 4 ML
     Route: 042
     Dates: start: 2013

REACTIONS (1)
  - Amenorrhoea [Not Recovered/Not Resolved]
